FAERS Safety Report 7135419-1 (Version None)
Quarter: 2010Q4

REPORT INFORMATION
  Report Type: 
  Country: None (occurrence: None)
  Receive Date: 20101118
  Receipt Date: 20101108
  Transmission Date: 20110411
  Serious: Yes (Death)
  Sender: FDA-Public Use
  Company Number: 2010110013

PATIENT
  Age: 42 Year
  Sex: Male

DRUGS (7)
  1. ONSOLIS [Suspect]
     Indication: CANCER PAIN
     Dosage: TITRATE UP TO 4-200 MCG FILMS/DOSE (UP TO 4 TIMES DAILY), BU
     Route: 002
     Dates: start: 20101020
  2. ROXICET (OXYCODONE, ACETAMINOPHEN) [Concomitant]
  3. DURAGESIC-100 [Concomitant]
  4. DILAUDID [Concomitant]
  5. MORPHINE [Concomitant]
  6. LORTAB [Concomitant]
  7. OXYCODONE HCL [Concomitant]

REACTIONS (2)
  - COLON CANCER [None]
  - MALIGNANT NEOPLASM PROGRESSION [None]
